FAERS Safety Report 5630728-7 (Version None)
Quarter: 2008Q1

REPORT INFORMATION
  Report Type: 
  Country: None (occurrence: None)
  Receive Date: 20080219
  Receipt Date: 20080211
  Transmission Date: 20080703
  Serious: Yes (Hospitalization)
  Sender: FDA-Public Use
  Company Number: DE-JNJFOC-20080202351

PATIENT
  Age: 37 Year
  Sex: Female

DRUGS (15)
  1. INVEGA [Suspect]
     Route: 048
  2. INVEGA [Suspect]
     Route: 048
  3. INVEGA [Suspect]
     Indication: DRUG USE FOR UNKNOWN INDICATION
     Route: 048
  4. FLUOXETINE HCL [Concomitant]
     Route: 048
  5. FLUOXETINE HCL [Concomitant]
     Route: 048
  6. STILNOX [Concomitant]
     Route: 048
  7. DIAZEPAM [Concomitant]
     Route: 048
     Dates: start: 20071002, end: 20071031
  8. DIAZEPAM [Concomitant]
     Route: 048
     Dates: start: 20071002, end: 20071031
  9. DIAZEPAM [Concomitant]
     Route: 048
     Dates: start: 20071002, end: 20071031
  10. DIAZEPAM [Concomitant]
     Route: 048
     Dates: start: 20071002, end: 20071031
  11. DIAZEPAM [Concomitant]
     Route: 048
     Dates: start: 20071002, end: 20071031
  12. DIAZEPAM [Concomitant]
     Route: 048
     Dates: start: 20071002, end: 20071031
  13. DIAZEPAM [Concomitant]
     Route: 048
     Dates: start: 20071002, end: 20071031
  14. DIAZEPAM [Concomitant]
     Route: 048
     Dates: start: 20071002, end: 20071031
  15. DIAZEPAM [Concomitant]
     Route: 048
     Dates: start: 20071002, end: 20071031

REACTIONS (2)
  - ACCOMMODATION DISORDER [None]
  - RHINITIS [None]
